FAERS Safety Report 16143877 (Version 1)
Quarter: 2019Q2

REPORT INFORMATION
  Report Type: Spontaneous
  Country: FR (occurrence: FR)
  Receive Date: 20190401
  Receipt Date: 20190401
  Transmission Date: 20190711
  Serious: Yes (Other)
  Sender: FDA-Public Use
  Company Number: FR-PFIZER INC-2019134364

PATIENT
  Age: 86 Year
  Sex: Female
  Weight: 56 kg

DRUGS (2)
  1. ZAMUDOL [Suspect]
     Active Substance: TRAMADOL HYDROCHLORIDE
     Indication: PAIN
     Dosage: 400 MG, 1X/DAY
     Route: 048
     Dates: start: 20181004
  2. LYRICA [Suspect]
     Active Substance: PREGABALIN
     Indication: ANXIETY DISORDER
     Dosage: 200 MG, DAILY
     Route: 048
     Dates: start: 20181004

REACTIONS (3)
  - Fall [Recovering/Resolving]
  - Confusional state [Recovering/Resolving]
  - Dementia [Recovering/Resolving]

NARRATIVE: CASE EVENT DATE: 20181202
